FAERS Safety Report 11158916 (Version 1)
Quarter: 2015Q2

REPORT INFORMATION
  Report Type: Spontaneous
  Country: US (occurrence: US)
  Receive Date: 20150603
  Receipt Date: 20150603
  Transmission Date: 20150821
  Serious: No
  Sender: FDA-Public Use
  Company Number: US-B.I. PHARMACEUTICALS,INC./RIDGEFIELD-2015-BI-27267BP

PATIENT
  Sex: Female

DRUGS (2)
  1. SPIRIVA [Suspect]
     Active Substance: TIOTROPIUM BROMIDE MONOHYDRATE
     Indication: PRODUCT USED FOR UNKNOWN INDICATION
     Dosage: 9 MCG
     Route: 055
  2. TAMOXIFEN [Concomitant]
     Active Substance: TAMOXIFEN
     Indication: PROPHYLAXIS
     Route: 048

REACTIONS (5)
  - Malaise [Unknown]
  - Cataract [Not Recovered/Not Resolved]
  - Halo vision [Not Recovered/Not Resolved]
  - Cough [Not Recovered/Not Resolved]
  - Bronchospasm [Not Recovered/Not Resolved]
